FAERS Safety Report 5261203-X (Version None)
Quarter: 2007Q1

REPORT INFORMATION
  Report Type: 
  Country: None (occurrence: None)
  Receive Date: 20070309
  Receipt Date: 20070227
  Transmission Date: 20070707
  Serious: Yes (Hospitalization, Other)
  Sender: FDA-Public Use
  Company Number: ES-PFIZER INC-2007015365

PATIENT
  Age: 51 Year
  Sex: Male

DRUGS (6)
  1. LYRICA [Suspect]
     Route: 048
     Dates: start: 20061031, end: 20070129
  2. RISPERDAL [Concomitant]
  3. ORFIDAL [Concomitant]
  4. REXER [Concomitant]
  5. KEPPRA [Concomitant]
  6. OMEPRAZOLE [Concomitant]

REACTIONS (1)
  - PRIAPISM [None]
